FAERS Safety Report 8508360-7 (Version None)
Quarter: 2012Q3

REPORT INFORMATION
  Report Type: 
  Country: None (occurrence: None)
  Receive Date: 20120713
  Receipt Date: 20120705
  Transmission Date: 20120928
  Serious: Yes (Other)
  Sender: FDA-Public Use
  Company Number: PHEH2012US011180

PATIENT
  Sex: Female

DRUGS (8)
  1. HYZAAR [Concomitant]
  2. NOVOLOG [Concomitant]
  3. LANTUS [Concomitant]
  4. AVONEX [Suspect]
     Dates: start: 19910101, end: 20060101
  5. VITAMIN D [Concomitant]
  6. METFORMIN HYDROCHLORIDE [Concomitant]
  7. GILENYA [Suspect]
     Indication: MULTIPLE SCLEROSIS
     Dosage: 0.5 MG, QD
     Route: 048
     Dates: start: 20111201, end: 20120529
  8. PREVACID [Concomitant]

REACTIONS (5)
  - HEPATIC FIBROSIS [None]
  - NON-ALCOHOLIC STEATOHEPATITIS [None]
  - CHOLELITHIASIS [None]
  - HEPATIC ENZYME INCREASED [None]
  - GALLBLADDER DISORDER [None]
